FAERS Safety Report 9154938 (Version 3)
Quarter: 2013Q1

REPORT INFORMATION
  Report Type: Spontaneous
  Country: US (occurrence: None)
  Receive Date: 20130205
  Receipt Date: 20130328
  Transmission Date: 20140127
  Serious: Yes (Disabling, Other)
  Sender: FDA-Public Use
  Company Number: KAD201301-000120

PATIENT
  Age: 61 Year
  Sex: Female
  Weight: 83.91 kg

DRUGS (7)
  1. RIBAPAK [Suspect]
     Indication: HEPATITIS C
     Dosage: 400MG IN AM AND 400MG IN PM, PER ORAL
     Route: 048
     Dates: start: 20121019, end: 20130116
  2. PEGINTRON REDIPEN 150 MCG [Suspect]
     Indication: HEPATITIS C
     Dosage: ONCE WEEKLY
     Route: 058
     Dates: start: 20121019, end: 20130116
  3. KLONOPIN (CLONAZEPAM) (TABLETS) [Suspect]
  4. HYDROCHLOROTHIAZIDE [Concomitant]
  5. BENAZEPRIL [Concomitant]
  6. PROZAC [Concomitant]
  7. OTC CRANBERRY EXTRACT PILLS [Concomitant]

REACTIONS (20)
  - Abdominal distension [None]
  - Insomnia [None]
  - Cough [None]
  - Decreased appetite [None]
  - Platelet count decreased [None]
  - Nausea [None]
  - Vomiting [None]
  - Lethargy [None]
  - Liver disorder [None]
  - Emotional disorder [None]
  - Abdominal distension [None]
  - Headache [None]
  - Tremor [None]
  - Hearing impaired [None]
  - Visual impairment [None]
  - Fall [None]
  - Dysarthria [None]
  - Enuresis [None]
  - Dyspnoea [None]
  - Product blister packaging issue [None]
